FAERS Safety Report 8722391 (Version 2)
Quarter: 2013Q4

REPORT INFORMATION
  Report Type: Spontaneous
  Country: US (occurrence: US)
  Receive Date: 20120814
  Receipt Date: 20131003
  Transmission Date: 20140711
  Serious: No
  Sender: FDA-Public Use
  Company Number: US-009507513-1208USA004609

PATIENT
  Age: 47 Year
  Sex: Female

DRUGS (1)
  1. MAXALT [Suspect]
     Indication: MIGRAINE
     Dosage: 10 MG, PRN
     Route: 048
     Dates: start: 201108

REACTIONS (2)
  - Migraine [Not Recovered/Not Resolved]
  - Therapeutic response decreased [Not Recovered/Not Resolved]
